FAERS Safety Report 5498704-5 (Version None)
Quarter: 2007Q4

REPORT INFORMATION
  Report Type: 
  Country: None (occurrence: None)
  Receive Date: 20071024
  Receipt Date: 20071024
  Transmission Date: 20080405
  Serious: Yes (Hospitalization)
  Sender: FDA-Public Use
  Company Number: None

PATIENT
  Age: 65 Year
  Sex: Male
  Weight: 63.5036 kg

DRUGS (2)
  1. WARFARIN SODIUM [Suspect]
     Indication: DEEP VEIN THROMBOSIS
     Dosage: 7.5MG HS PO
     Route: 048
     Dates: start: 20051103
  2. DEXAMETHASONE [Suspect]
     Indication: SQUAMOUS CELL CARCINOMA
     Dosage: 4MG BID PO
     Route: 048
     Dates: start: 20060510

REACTIONS (2)
  - ANAEMIA [None]
  - HAEMORRHAGE [None]
